FAERS Safety Report 22153353 (Version 1)
Quarter: 2023Q1

REPORT INFORMATION
  Report Type: Report from Study
  Country: US (occurrence: US)
  Receive Date: 20230329
  Receipt Date: 20230329
  Transmission Date: 20230418
  Serious: Yes (Other)
  Sender: FDA-Public Use
  Company Number: US-ACADIA PHARMACEUTICALS INC.-ACA-2023-PIM-000873

PATIENT
  Age: 76 Year
  Sex: Female

DRUGS (14)
  1. NUPLAZID [Suspect]
     Active Substance: PIMAVANSERIN TARTRATE
     Indication: Parkinson^s disease
     Dosage: 34 MILLIGRAM, QD
     Route: 048
     Dates: start: 20230208
  2. NUPLAZID [Suspect]
     Active Substance: PIMAVANSERIN TARTRATE
     Indication: Parkinson^s disease psychosis
  3. BUMETANIDE [Concomitant]
     Active Substance: BUMETANIDE
  4. DULOXETINE [Concomitant]
     Active Substance: DULOXETINE
  5. ELIQUIS [Concomitant]
     Active Substance: APIXABAN
  6. CALCIUM [Concomitant]
     Active Substance: CALCIUM
  7. ANASTROZOLE [Concomitant]
     Active Substance: ANASTROZOLE
  8. ATORVASTATIN [Concomitant]
     Active Substance: ATORVASTATIN
  9. CLOPIDOGREL [Concomitant]
     Active Substance: CLOPIDOGREL BISULFATE
  10. LOSARTAN [Concomitant]
     Active Substance: LOSARTAN
  11. CARBIDOPA [Concomitant]
     Active Substance: CARBIDOPA
  12. METOPROLOL [Concomitant]
     Active Substance: METOPROLOL
  13. SPIRONOLACTONE [Concomitant]
     Active Substance: SPIRONOLACTONE
  14. VITAMIN D2 [Concomitant]
     Active Substance: ERGOCALCIFEROL

REACTIONS (5)
  - Loss of consciousness [Not Recovered/Not Resolved]
  - Blood pressure fluctuation [Not Recovered/Not Resolved]
  - Dizziness [Not Recovered/Not Resolved]
  - Gait disturbance [Unknown]
  - Fall [Unknown]

NARRATIVE: CASE EVENT DATE: 20230306
